FAERS Safety Report 9721517 (Version 1)
Quarter: 2013Q4

REPORT INFORMATION
  Report Type: Spontaneous
  Country: US (occurrence: US)
  Receive Date: 20131130
  Receipt Date: 20131130
  Transmission Date: 20140711
  Serious: No
  Sender: FDA-Public Use
  Company Number: US-009507513-1311USA005016

PATIENT
  Age: 56 Year
  Sex: Female

DRUGS (4)
  1. PROVENTIL [Suspect]
     Indication: ASTHMA
     Dosage: TWO PUFFS EVERY 4 - 6 HOURS AS NEEDED
     Route: 055
     Dates: start: 2009
  2. VENTOLIN (ALBUTEROL) [Concomitant]
  3. SPIRIVA [Concomitant]
  4. LIPITOR [Concomitant]

REACTIONS (3)
  - Dyspnoea [Not Recovered/Not Resolved]
  - Drug dose omission [Unknown]
  - Product quality issue [Unknown]
